FAERS Safety Report 9128874 (Version 1)
Quarter: 2013Q1

REPORT INFORMATION
  Report Type: Spontaneous
  Country: CH (occurrence: CH)
  Receive Date: 20130228
  Receipt Date: 20130228
  Transmission Date: 20140127
  Serious: Yes (Hospitalization)
  Sender: FDA-Public Use
  Company Number: CH-ASTRAZENECA-2013SE11778

PATIENT
  Age: 84 Year
  Sex: Female
  Weight: 47 kg

DRUGS (5)
  1. NEXIUM [Suspect]
     Route: 048
  2. CIPRALEX [Suspect]
     Indication: DEPRESSION
     Route: 065
     Dates: end: 20121217
  3. REMERON [Suspect]
     Indication: DEPRESSION
     Route: 048
     Dates: start: 20130104
  4. DE-URSIL [Concomitant]
     Indication: BILIARY CIRRHOSIS PRIMARY
     Route: 048
  5. ASPIRIN CARDIO [Concomitant]
     Route: 048

REACTIONS (6)
  - Neck pain [Unknown]
  - Viral infection [Unknown]
  - Fall [Unknown]
  - Pyrexia [Unknown]
  - Pancytopenia [Recovering/Resolving]
  - Drug effect incomplete [Unknown]
